FAERS Safety Report 4395269-6 (Version None)
Quarter: 2004Q3

REPORT INFORMATION
  Report Type: 
  Country: None (occurrence: None)
  Receive Date: 20040712
  Receipt Date: 20040706
  Transmission Date: 20050211
  Serious: Yes (Death)
  Sender: FDA-Public Use
  Company Number: JP-MERCK-0407USA00699

PATIENT
  Age: 15 Year
  Sex: Female

DRUGS (4)
  1. MODACIN [Concomitant]
     Indication: INFECTION
     Route: 065
  2. PRIMAXIN [Suspect]
     Indication: INFECTION
     Route: 041
  3. MICAFUNGIN [Suspect]
     Indication: INFECTION
     Route: 041
  4. PROGRAF [Suspect]
     Indication: IMMUNOSUPPRESSION
     Route: 065

REACTIONS (2)
  - HAEMOLYTIC URAEMIC SYNDROME [None]
  - RENAL FAILURE ACUTE [None]
